FAERS Safety Report 6147459-X (Version None)
Quarter: 2009Q2

REPORT INFORMATION
  Report Type: 
  Country: None (occurrence: None)
  Receive Date: 20090402
  Receipt Date: 20090330
  Transmission Date: 20091009
  Serious: Yes (Other)
  Sender: FDA-Public Use
  Company Number: 220006M08CAN

PATIENT
  Age: 74 Year
  Sex: Male
  Weight: 93 kg

DRUGS (1)
  1. SAIZEN [Suspect]
     Indication: OFF LABEL USE
     Dosage: 0.12, SUBCUTANEOUS
     Route: 058
     Dates: start: 20080419

REACTIONS (3)
  - BRAIN OEDEMA [None]
  - OFF LABEL USE [None]
  - SELF-MEDICATION [None]
